FAERS Safety Report 5381370-7 (Version None)
Quarter: 2007Q2

REPORT INFORMATION
  Report Type: 
  Country: None (occurrence: None)
  Receive Date: 20070629
  Receipt Date: 20060511
  Transmission Date: 20071010
  Serious: Yes (Hospitalization)
  Sender: FDA-Public Use
  Company Number: 2006060161

PATIENT
  Age: 54 Year
  Sex: Male

DRUGS (2)
  1. ZOLOFT [Suspect]
     Indication: ILL-DEFINED DISORDER
  2. ISOTRETINOIN [Suspect]
     Indication: PITYRIASIS RUBRA PILARIS
     Dosage: 80 MG (40 MG,2 IN 1 D)
     Dates: start: 20060216, end: 20060420

REACTIONS (3)
  - DEPRESSION SUICIDAL [None]
  - PITYRIASIS RUBRA PILARIS [None]
  - SUICIDAL IDEATION [None]
